FAERS Safety Report 5684820-1 (Version None)
Quarter: 2008Q1

REPORT INFORMATION
  Report Type: 
  Country: None (occurrence: None)
  Receive Date: 20080328
  Receipt Date: 20071016
  Transmission Date: 20080703
  Serious: No
  Sender: FDA-Public Use
  Company Number: US-BRISTOL-MYERS SQUIBB COMPANY-13944707

PATIENT
  Sex: Male

DRUGS (4)
  1. ERBITUX [Suspect]
     Indication: NEOPLASM MALIGNANT
  2. GEMZAR [Concomitant]
  3. CARBOPLATIN [Concomitant]
  4. TAXOL [Concomitant]

REACTIONS (1)
  - PAIN IN EXTREMITY [None]
